FAERS Safety Report 13667885 (Version 1)
Quarter: 2017Q2

REPORT INFORMATION
  Report Type: Spontaneous
  Country: US (occurrence: US)
  Receive Date: 20170619
  Receipt Date: 20170619
  Transmission Date: 20170830
  Serious: Yes (Other)
  Sender: FDA-Public Use
  Company Number: None

PATIENT
  Age: 22 Year
  Sex: Female
  Weight: 99.88 kg

DRUGS (1)
  1. RISPERIDONE, 3 MG [Suspect]
     Active Substance: RISPERIDONE
     Indication: PSYCHOTIC DISORDER
     Route: 048
     Dates: start: 20170526, end: 20170606

REACTIONS (3)
  - White blood cell count increased [None]
  - Neutrophil count increased [None]
  - Therapy cessation [None]

NARRATIVE: CASE EVENT DATE: 20170612
